FAERS Safety Report 7761821-0 (Version None)
Quarter: 2011Q3

REPORT INFORMATION
  Report Type: 
  Country: None (occurrence: None)
  Receive Date: 20110915
  Receipt Date: 20110908
  Transmission Date: 20111222
  Serious: Yes (Hospitalization)
  Sender: FDA-Public Use
  Company Number: 1040013

PATIENT
  Age: 50 Year
  Sex: Male

DRUGS (4)
  1. GEMZAR [Suspect]
     Indication: NON-HODGKIN'S LYMPHOMA
     Dosage: 1200 MG/M2 MILLIGRAM(S) SQ. METER, INTRAVENOUS
     Route: 042
     Dates: start: 20110701, end: 20110702
  2. ALLOPURINOL [Concomitant]
  3. OXALIPLATIN [Suspect]
     Indication: NON-HODGKIN'S LYMPHOMA
     Dosage: 130 MG/M2 MILLIGRAM(S)/SQ. METER, INTRAVENOUS
     Route: 042
     Dates: start: 20110702, end: 20110702
  4. IFOSFAMIDE [Suspect]
     Indication: NON-HODGKIN'S LYMPHOMA
     Dosage: 5000 MG/M2 MILLIGRAM(S) SQ. METER, INTRAVENOUS
     Route: 042
     Dates: start: 20110702, end: 20110702

REACTIONS (2)
  - TOXIC EPIDERMAL NECROLYSIS [None]
  - ACQUIRED EPIDERMOLYSIS BULLOSA [None]
